FAERS Safety Report 25894668 (Version 2)
Quarter: 2025Q4

REPORT INFORMATION
  Report Type: Report from Study
  Country: BR (occurrence: BR)
  Receive Date: 20251008
  Receipt Date: 20251225
  Transmission Date: 20260117
  Serious: Yes (Hospitalization)
  Sender: AMGEN
  Company Number: BR-AMGEN-BRASL2025024558

PATIENT
  Age: 68 Year
  Sex: Male

DRUGS (2)
  1. VECTIBIX [Suspect]
     Active Substance: PANITUMUMAB
     Indication: Colorectal cancer metastatic
     Dosage: UNK EVERY 15 DAYS CATHETER
     Route: 040
  2. Alenia [Concomitant]
     Dosage: UNK UNK, BID 1 TABLET IN THE MORNING AND 1 TABLET AT NIGHT
     Route: 065

REACTIONS (29)
  - Malaise [Unknown]
  - Anaemia [Unknown]
  - Limb injury [Unknown]
  - Hypoaesthesia [Recovering/Resolving]
  - Product dose confusion [Unknown]
  - Productive cough [Unknown]
  - Impaired work ability [Unknown]
  - Dysphonia [Unknown]
  - Somnolence [Recovering/Resolving]
  - Skin lesion [Unknown]
  - Epistaxis [Unknown]
  - Abdominal pain [Recovering/Resolving]
  - Asthenia [Not Recovered/Not Resolved]
  - Chapped lips [Unknown]
  - Pruritus [Unknown]
  - Vomiting [Unknown]
  - Fatigue [Not Recovered/Not Resolved]
  - Diarrhoea [Recovering/Resolving]
  - Cough [Unknown]
  - Skin fissures [Recovering/Resolving]
  - Pain in extremity [Recovering/Resolving]
  - Skin exfoliation [Recovering/Resolving]
  - Blister rupture [Recovering/Resolving]
  - Scab [Recovering/Resolving]
  - Nasal ulcer [Recovering/Resolving]
  - Skin haemorrhage [Recovering/Resolving]
  - Limb discomfort [Recovering/Resolving]
  - Mouth ulceration [Recovering/Resolving]
  - Therapy interrupted [Unknown]

NARRATIVE: CASE EVENT DATE: 20250101
